FAERS Safety Report 24347376 (Version 1)
Quarter: 2024Q3

REPORT INFORMATION
  Report Type: Spontaneous
  Country: US (occurrence: US)
  Receive Date: 20240922
  Receipt Date: 20240922
  Transmission Date: 20241016
  Serious: No
  Sender: CIPLA
  Company Number: US-CIPLA LTD.-2023US05119

PATIENT

DRUGS (4)
  1. DICLOFENAC [Suspect]
     Active Substance: DICLOFENAC
     Indication: Back pain
     Dosage: UNK UNK, QD (LATE IN THE EVENING)
     Route: 061
     Dates: start: 20230703, end: 20230703
  2. DICLOFENAC [Suspect]
     Active Substance: DICLOFENAC
     Dosage: UNK, TID ( SHE USED IT 3 TIMES)
     Route: 061
     Dates: start: 20230704, end: 20230704
  3. CLONAZEPAM [Concomitant]
     Active Substance: CLONAZEPAM
     Indication: Anxiety
     Dosage: 0.25 MG, QD (SHE DIVIDES A 0.5 MG TABLET IN HALF. SHE WAS TAKING A QUARTER OF MG (0.25 MG PER DAY US
     Route: 065
  4. ATORVASTATIN [Concomitant]
     Active Substance: ATORVASTATIN
     Indication: Blood cholesterol abnormal
     Dosage: 1 TABLET PER DAY
     Route: 065
     Dates: start: 202106

REACTIONS (2)
  - Off label use [Unknown]
  - Drug ineffective for unapproved indication [Unknown]

NARRATIVE: CASE EVENT DATE: 20230703
